FAERS Safety Report 9227599 (Version 1)
Quarter: 2013Q1

REPORT INFORMATION
  Report Type: Spontaneous
  Country: US (occurrence: None)
  Receive Date: 20121012
  Receipt Date: 20121012
  Transmission Date: 20140127
  Serious: Yes (Death)
  Sender: FDA-Public Use
  Company Number: 1000030062

PATIENT
  Sex: Male

DRUGS (1)
  1. ESCITALOPRAM [Suspect]
     Route: 048
     Dates: start: 20120314

REACTIONS (4)
  - Completed suicide [None]
  - Depression [None]
  - Tachyphrenia [None]
  - Unevaluable event [None]
